FAERS Safety Report 6844362-4 (Version None)
Quarter: 2010Q3

REPORT INFORMATION
  Report Type: 
  Country: None (occurrence: None)
  Receive Date: 20100715
  Receipt Date: 20100709
  Transmission Date: 20110219
  Serious: Yes (Death)
  Sender: FDA-Public Use
  Company Number: FR-ROCHE-714453

PATIENT
  Sex: Female

DRUGS (3)
  1. XELODA [Suspect]
     Indication: GASTROINTESTINAL NEOPLASM
     Route: 065
  2. FLUOROURACIL [Suspect]
     Indication: GASTROINTESTINAL NEOPLASM
     Route: 065
  3. FOLFOX REGIMEN [Suspect]
     Indication: GASTROINTESTINAL NEOPLASM
     Route: 065

REACTIONS (1)
  - DEATH [None]
